FAERS Safety Report 5643628-3 (Version None)
Quarter: 2008Q1

REPORT INFORMATION
  Report Type: 
  Country: None (occurrence: None)
  Receive Date: 20080228
  Receipt Date: 20080218
  Transmission Date: 20080703
  Serious: Yes (Other)
  Sender: FDA-Public Use
  Company Number: US-PFIZER INC-2007095189

PATIENT
  Sex: Male
  Weight: 95.3 kg

DRUGS (1)
  1. XALATAN [Suspect]
     Indication: GLAUCOMA

REACTIONS (2)
  - CARDIAC DISORDER [None]
  - UPPER RESPIRATORY TRACT INFECTION [None]
